FAERS Safety Report 21830620 (Version 1)
Quarter: 2023Q1

REPORT INFORMATION
  Report Type: Spontaneous
  Country: US (occurrence: None)
  Receive Date: 20230105
  Receipt Date: 20230105
  Transmission Date: 20230418
  Serious: Yes (Other)
  Sender: FDA-Public Use
  Company Number: None

PATIENT
  Sex: 0

DRUGS (9)
  1. METHYLPHENIDATE [Suspect]
     Active Substance: METHYLPHENIDATE
     Indication: Attention deficit hyperactivity disorder
  2. methylphenidate hydrochloride tablet, ER: ACTAVIS [Concomitant]
  3. methylphenidate hydrochloride tablet, ER: Alvogen [Concomitant]
  4. methylphenidate hydrochloride tablet, ER: Andor [Concomitant]
  5. methylphenidate hydrochloride tablet, ER: Ascent [Concomitant]
  6. methylphenidate hydrochloride tablet, ER: Aurolife [Concomitant]
  7. methylphenidate hydrochloride tablet, ER: Dr. Reddys [Concomitant]
  8. methylphenidate hydrochloride tablet, ER: Osmotica [Concomitant]
  9. methylphenidate hydrochloride tablet, ER: Sun Pharm [Concomitant]

REACTIONS (4)
  - Anxiety [None]
  - Irritability [None]
  - Disturbance in attention [None]
  - Product substitution issue [None]
